FAERS Safety Report 14119282 (Version 1)
Quarter: 2017Q4

REPORT INFORMATION
  Report Type: Spontaneous
  Country: US (occurrence: US)
  Receive Date: 20171023
  Receipt Date: 20171023
  Transmission Date: 20180321
  Serious: Yes (Death)
  Sender: FDA-Public Use
  Company Number: None

PATIENT
  Age: 83 Year
  Sex: Female
  Weight: 49.5 kg

DRUGS (1)
  1. ALLOPURINOL. [Suspect]
     Active Substance: ALLOPURINOL
     Indication: BLOOD URIC ACID
     Route: 048

REACTIONS (7)
  - Vomiting [None]
  - Rash [None]
  - Renal failure [None]
  - Abdominal pain upper [None]
  - Dysphonia [None]
  - Hepatic failure [None]
  - Diarrhoea [None]

NARRATIVE: CASE EVENT DATE: 20170727
